FAERS Safety Report 9361263 (Version 1)
Quarter: 2013Q2

REPORT INFORMATION
  Report Type: Spontaneous
  Country: DE (occurrence: DE)
  Receive Date: 20130621
  Receipt Date: 20130621
  Transmission Date: 20140414
  Serious: Yes (Death)
  Sender: FDA-Public Use
  Company Number: DE-JNJFOC-20090705530

PATIENT
  Sex: 0

DRUGS (4)
  1. ABCIXIMAB [Suspect]
     Indication: BASILAR ARTERY OCCLUSION
     Route: 042
  2. ABCIXIMAB [Suspect]
     Indication: BASILAR ARTERY OCCLUSION
     Route: 042
  3. RT-PA [Suspect]
     Indication: BASILAR ARTERY OCCLUSION
     Dosage: UP TO A MAXIMUM OF THE STANDARD IV DOSE OF 0.9 MG/KG
     Route: 013
  4. HEPARIN [Concomitant]
     Indication: CATHETERISATION CARDIAC
     Dosage: UP TO A MAXIMUM OF 2000 IU
     Route: 065

REACTIONS (1)
  - Haemorrhage intracranial [Fatal]
